FAERS Safety Report 24264296 (Version 1)
Quarter: 2024Q3

REPORT INFORMATION
  Report Type: Spontaneous
  Country: US (occurrence: US)
  Receive Date: 20240829
  Receipt Date: 20240829
  Transmission Date: 20241017
  Serious: Yes (Other)
  Sender: BRISTOL MYERS SQUIBB
  Company Number: US-BRISTOL-MYERS SQUIBB COMPANY-2024-135707

PATIENT
  Age: 82 Year
  Sex: Male

DRUGS (1)
  1. REVLIMID [Suspect]
     Active Substance: LENALIDOMIDE
     Indication: Plasma cell myeloma
     Dosage: FREQUENCY: QD FOR 14 DAYS ON AND 7 DAYS OFF
     Route: 048

REACTIONS (7)
  - Fatigue [Unknown]
  - Diarrhoea [Unknown]
  - Tooth infection [Unknown]
  - Weight increased [Unknown]
  - Weight decreased [Unknown]
  - Nausea [Unknown]
  - Fracture [Unknown]
